FAERS Safety Report 10451219 (Version 1)
Quarter: 2014Q3

REPORT INFORMATION
  Report Type: Spontaneous
  Country: US (occurrence: US)
  Receive Date: 20140912
  Receipt Date: 20140912
  Transmission Date: 20150326
  Serious: Yes (Other)
  Sender: FDA-Public Use
  Company Number: US-ALLERGAN-1419681US

PATIENT
  Sex: Female

DRUGS (2)
  1. JUVEDERM [Suspect]
     Active Substance: HYALURONIC ACID
     Indication: SKIN WRINKLING
  2. BOTOX COSMETIC [Suspect]
     Active Substance: ONABOTULINUMTOXINA
     Indication: SKIN WRINKLING

REACTIONS (1)
  - Guillain-Barre syndrome [Unknown]
